FAERS Safety Report 21402034 (Version 1)
Quarter: 2022Q4

REPORT INFORMATION
  Report Type: Spontaneous
  Country: US (occurrence: None)
  Receive Date: 20221001
  Receipt Date: 20221001
  Transmission Date: 20230113
  Serious: Yes (Other)
  Sender: FDA-Public Use
  Company Number: None

PATIENT
  Age: 54 Year
  Sex: Female
  Weight: 81 kg

DRUGS (5)
  1. PAXLOVID [Suspect]
     Active Substance: NIRMATRELVIR\RITONAVIR
     Indication: COVID-19
     Dosage: FREQUENCY : TWICE A DAY;?
     Route: 048
     Dates: start: 20220926, end: 20221001
  2. VITAMIN D [Concomitant]
     Active Substance: VITAMIN D NOS
     Dates: start: 20170101
  3. Multivitamin Gummies [Concomitant]
     Dates: start: 20170101
  4. CLARITIN [Concomitant]
     Active Substance: LORATADINE
     Dates: start: 20220901
  5. VITAMIN B [Concomitant]
     Active Substance: VITAMIN B
     Dates: start: 20170101

REACTIONS (4)
  - Taste disorder [None]
  - Restlessness [None]
  - Insomnia [None]
  - Poor quality sleep [None]

NARRATIVE: CASE EVENT DATE: 20220926
